FAERS Safety Report 4761521-5 (Version None)
Quarter: 2005Q3

REPORT INFORMATION
  Report Type: 
  Country: None (occurrence: None)
  Receive Date: 20050906
  Receipt Date: 20050830
  Transmission Date: 20060218
  Serious: Yes (Other)
  Sender: FDA-Public Use
  Company Number: 2005GB01667

PATIENT
  Age: 84 Year
  Sex: Female
  Weight: 58.5 kg

DRUGS (10)
  1. ARIMIDEX [Suspect]
     Indication: BREAST CANCER
     Route: 048
     Dates: start: 20050726
  2. ASPIRIN [Concomitant]
     Indication: CEREBROVASCULAR ACCIDENT
     Route: 048
  3. ACETAMINOPHEN W/ CODEINE [Concomitant]
     Indication: PAIN
     Route: 048
  4. DIGOXIN [Concomitant]
     Indication: ATRIAL FIBRILLATION
     Route: 048
  5. NITRAZEPAM [Concomitant]
     Indication: INSOMNIA
     Route: 048
  6. POTASSIUM CHLORIDE [Concomitant]
     Indication: MUSCLE SPASMS
     Route: 065
  7. QUININE SULFATE [Concomitant]
     Indication: MUSCLE SPASMS
     Route: 065
  8. SENNA [Concomitant]
     Indication: CONSTIPATION
     Route: 065
  9. LACTULOSE [Concomitant]
     Indication: CONSTIPATION
     Route: 065
  10. CO-AMILOFRUSE [Concomitant]
     Indication: LEFT VENTRICULAR FAILURE
     Route: 048

REACTIONS (1)
  - BLOOD GLUCOSE INCREASED [None]
